FAERS Safety Report 7796362-8 (Version None)
Quarter: 2011Q4

REPORT INFORMATION
  Report Type: 
  Country: None (occurrence: None)
  Receive Date: 20111005
  Receipt Date: 20110926
  Transmission Date: 20120403
  Serious: Yes (Hospitalization, Other)
  Sender: FDA-Public Use
  Company Number: US-BIOGENIDEC-2011BI036788

PATIENT
  Sex: Male

DRUGS (3)
  1. AVONEX [Suspect]
     Indication: MULTIPLE SCLEROSIS
     Route: 030
     Dates: start: 20110912, end: 20110912
  2. COPAXONE [Concomitant]
     Indication: MULTIPLE SCLEROSIS
     Dates: start: 20100101
  3. AVONEX [Suspect]
     Route: 030
     Dates: start: 20110926

REACTIONS (2)
  - SYSTEMIC LUPUS ERYTHEMATOSUS [None]
  - MULTIPLE SCLEROSIS RELAPSE [None]
